FAERS Safety Report 4980301-9 (Version None)
Quarter: 2006Q2

REPORT INFORMATION
  Report Type: 
  Country: None (occurrence: None)
  Receive Date: 20060424
  Receipt Date: 20060328
  Transmission Date: 20061013
  Serious: Yes (Hospitalization, Other)
  Sender: FDA-Public Use
  Company Number: JP-ABBOTT-06P-087-0329202-00

PATIENT
  Sex: Female
  Weight: 52.9 kg

DRUGS (2)
  1. CEFZON [Suspect]
     Indication: URINARY TRACT INFECTION
     Route: 048
     Dates: start: 20060316, end: 20060319
  2. CEFZON [Suspect]

REACTIONS (4)
  - ACUTE GENERALISED EXANTHEMATOUS PUSTULOSIS [None]
  - PAIN IN EXTREMITY [None]
  - PYREXIA [None]
  - ULCERATIVE KERATITIS [None]
